FAERS Safety Report 8338484-9 (Version None)
Quarter: 2012Q2

REPORT INFORMATION
  Report Type: 
  Country: None (occurrence: None)
  Receive Date: 20120504
  Receipt Date: 20120426
  Transmission Date: 20120825
  Serious: Yes (Death)
  Sender: FDA-Public Use
  Company Number: FR-TEVA-336031USA

PATIENT
  Sex: Male
  Weight: 70 kg

DRUGS (11)
  1. BISOPROLOL FUMARATE [Concomitant]
     Indication: HYPERTENSION
     Route: 048
     Dates: end: 20120403
  2. FUROSEMIDE [Concomitant]
     Indication: PLEURAL EFFUSION
     Dates: start: 20120201, end: 20120404
  3. VALACICLOVIR [Concomitant]
  4. RITUXIMAB [Suspect]
     Indication: MANTLE CELL LYMPHOMA
     Route: 041
     Dates: start: 20120228, end: 20120327
  5. HYDROCORTISONE [Concomitant]
     Indication: SKIN TOXICITY
     Dates: start: 20120402, end: 20120403
  6. BENDAMUSTINE [Suspect]
     Indication: MANTLE CELL LYMPHOMA
     Dosage: 2.5 MG/ML;
     Route: 042
     Dates: start: 20120228, end: 20120328
  7. VORICONAZOLE [Concomitant]
  8. BORTEZOMIB [Suspect]
     Indication: MANTLE CELL LYMPHOMA
     Dosage: DAYS 1, 4, 8 AND 11
     Route: 058
     Dates: start: 20120228, end: 20120403
  9. HEPARIN-FRACTION, SODIUM SALT [Concomitant]
     Indication: VASCULAR COMPRESSION
     Route: 058
     Dates: start: 20120201, end: 20120403
  10. LEVOCETIRIZINE DIHYDROCHLORIDE [Concomitant]
     Indication: SKIN TOXICITY
     Route: 048
     Dates: start: 20120402, end: 20120403
  11. ALLOPURINOL [Concomitant]

REACTIONS (1)
  - CARDIAC ARREST [None]
